FAERS Safety Report 8111679-5 (Version None)
Quarter: 2012Q1

REPORT INFORMATION
  Report Type: 
  Country: None (occurrence: None)
  Receive Date: 20120203
  Receipt Date: 20120124
  Transmission Date: 20120608
  Serious: Yes (Other)
  Sender: FDA-Public Use
  Company Number: GB-JNJFOC-20110900613

PATIENT
  Sex: Female

DRUGS (4)
  1. METHOTREXATE [Concomitant]
     Dates: start: 20060927
  2. REMICADE [Suspect]
     Indication: RHEUMATOID ARTHRITIS
     Route: 042
     Dates: start: 20020915
  3. REMICADE [Suspect]
     Route: 042
     Dates: start: 20060927
  4. METHOTREXATE [Concomitant]
     Dates: start: 20020915

REACTIONS (2)
  - OVARIAN CANCER [None]
  - MALIGNANT PERITONEAL NEOPLASM [None]
